FAERS Safety Report 16679845 (Version 1)
Quarter: 2019Q3

REPORT INFORMATION
  Report Type: Report from Study
  Country: JP (occurrence: JP)
  Receive Date: 20190807
  Receipt Date: 20190807
  Transmission Date: 20191004
  Serious: Yes (Death, Hospitalization, Other)
  Sender: FDA-Public Use
  Company Number: JP-INCYTE CORPORATION-2018IN003160

PATIENT

DRUGS (7)
  1. JAKAVI [Suspect]
     Active Substance: RUXOLITINIB
     Dosage: 15 MG, BID
     Route: 048
     Dates: start: 20170302, end: 20170612
  2. RED BLOOD CELLS-LEUKOCYTES REDUCED [Concomitant]
     Active Substance: HUMAN RED BLOOD CELL
     Indication: ANAEMIA
  3. HYDREA [Suspect]
     Active Substance: HYDROXYUREA
     Indication: PRIMARY MYELOFIBROSIS
     Dosage: 500-1000 MG, UNK
     Route: 048
     Dates: start: 20161109, end: 20170627
  4. RED BLOOD CELLS-LEUKOCYTES REDUCED [Concomitant]
     Active Substance: HUMAN RED BLOOD CELL
     Indication: PRIMARY MYELOFIBROSIS
     Dosage: 2 DF, UNK
     Route: 042
     Dates: start: 20161108
  5. JAKAVI [Suspect]
     Active Substance: RUXOLITINIB
     Dosage: 10 MG, BID
     Route: 048
     Dates: start: 20161220, end: 20170301
  6. JAKAVI [Suspect]
     Active Substance: RUXOLITINIB
     Dosage: 15 MG, BID
     Route: 048
     Dates: start: 20160929, end: 20161109
  7. JAKAVI [Suspect]
     Active Substance: RUXOLITINIB
     Indication: PRIMARY MYELOFIBROSIS
     Dosage: 10 MG, BID
     Route: 048
     Dates: start: 20160825, end: 20160928

REACTIONS (6)
  - Hyperuricaemia [Recovered/Resolved]
  - Primary myelofibrosis [Fatal]
  - White blood cell count increased [Unknown]
  - Pyrexia [Recovering/Resolving]
  - Anaemia [Not Recovered/Not Resolved]
  - Primary myelofibrosis [Recovered/Resolved]

NARRATIVE: CASE EVENT DATE: 201610
